FAERS Safety Report 6783411-9 (Version None)
Quarter: 2010Q2

REPORT INFORMATION
  Report Type: 
  Country: None (occurrence: None)
  Receive Date: 20100622
  Receipt Date: 20100617
  Transmission Date: 20101027
  Serious: Yes (Hospitalization, Other)
  Sender: FDA-Public Use
  Company Number: BR-ROXANE LABORATORIES, INC.-2010-RO-00730RO

PATIENT
  Age: 23 Year
  Sex: Female

DRUGS (4)
  1. FUROSEMIDE [Suspect]
     Route: 042
  2. HYDRALAZINE HCL [Suspect]
     Indication: HYPERTENSION
  3. LANATOSIDE C [Suspect]
  4. METOPROLOL TARTRATE [Suspect]
     Indication: ATRIAL TACHYCARDIA
     Route: 042

REACTIONS (4)
  - ATRIAL TACHYCARDIA [None]
  - HYPERTENSION [None]
  - PREMATURE LABOUR [None]
  - PULMONARY OEDEMA [None]
